FAERS Safety Report 6249856-0 (Version None)
Quarter: 2009Q2

REPORT INFORMATION
  Report Type: 
  Country: None (occurrence: None)
  Receive Date: 20090629
  Receipt Date: 20090623
  Transmission Date: 20091009
  Serious: Yes (Death, Hospitalization, Disabling, Other)
  Sender: FDA-Public Use
  Company Number: US-CELGENEUS-163-20785-08061026

PATIENT
  Sex: Male

DRUGS (5)
  1. THALOMID [Suspect]
     Indication: MULTIPLE MYELOMA
     Route: 048
     Dates: start: 20020127, end: 20080409
  2. ASPIRIN [Concomitant]
     Indication: DRUG USE FOR UNKNOWN INDICATION
     Route: 065
     Dates: start: 20040524, end: 20060703
  3. ASPIRIN [Concomitant]
     Route: 065
     Dates: start: 20080328
  4. ARANESP [Concomitant]
     Indication: DRUG USE FOR UNKNOWN INDICATION
     Dosage: 200
     Route: 065
     Dates: start: 20040524, end: 20060703
  5. ARANESP [Concomitant]
     Route: 065
     Dates: start: 20080328

REACTIONS (7)
  - ASTHENIA [None]
  - DEATH [None]
  - DIZZINESS [None]
  - MYELODYSPLASTIC SYNDROME [None]
  - OXYGEN SATURATION DECREASED [None]
  - PANCYTOPENIA [None]
  - SLUGGISHNESS [None]
